FAERS Safety Report 6381399 (Version 2)
Quarter: 2012Q4

REPORT INFORMATION
  Report Type: 
  Country: US (occurrence: US)
  Receive Date: 20070813
  Receipt Date: 20120924
  Transmission Date: 20130627
  Serious: Yes (Hospitalization)
  Sender: FDA-Public Use
  Company Number: US-ASTRAZENECA-2007UW19149

PATIENT
  Age: 53 Year
  Sex: Female
  Weight: 68 kg

DRUGS (13)
  1. SEROQUEL [Suspect]
     Indication: SLEEP DISORDER
     Route: 048
     Dates: start: 2005, end: 20070804
  2. SEROQUEL [Suspect]
     Indication: ANXIETY
     Route: 048
     Dates: start: 2005, end: 20070804
  3. LITHIUM [Suspect]
     Route: 065
     Dates: end: 20070804
  4. LITHIUM [Suspect]
     Route: 065
  5. ATENOLOL [Concomitant]
     Route: 048
  6. NEXIUM [Concomitant]
     Route: 048
  7. WELLBUTRIN [Concomitant]
  8. ZOLOFT [Concomitant]
  9. KLONOPIN [Concomitant]
  10. IMITREX [Concomitant]
  11. FUROSEMIDE [Concomitant]
  12. CLINDAMYCIN [Concomitant]
  13. QUINAPRIL [Concomitant]

REACTIONS (6)
  - Overdose [Unknown]
  - Loss of consciousness [Unknown]
  - Panic attack [Unknown]
  - Anxiety [Unknown]
  - Insomnia [Unknown]
  - Drug dose omission [Unknown]
